FAERS Safety Report 9551745 (Version 1)
Quarter: 2013Q2

REPORT INFORMATION
  Report Type: Spontaneous
  Country: US (occurrence: None)
  Receive Date: 20130627
  Receipt Date: 20130627
  Transmission Date: 20140414
  Serious: No
  Sender: FDA-Public Use
  Company Number: 1000045005

PATIENT
  Age: 60 Year
  Sex: Female

DRUGS (8)
  1. LINZESS (LINACLOTIDE) (290 MICROGRAM, CAPSULES) [Suspect]
     Indication: CONSTIPATION
     Dosage: 1 IN 1 D
     Route: 048
     Dates: start: 20130502, end: 20130502
  2. DIAZEPAM (DIAZEPAM) (10 MILLIGRAM) (DIAZEPAM) [Concomitant]
  3. LISINOPRIL (LISINOPRIL) (LISINOPRIL) [Concomitant]
  4. ONDANSTRON (ONDANSETRON) (ONDANSETRON) [Concomitant]
  5. TRAZODONE (TRAZODONE) (100 MILLIGRAM) (TRAZODONE) [Concomitant]
  6. PANTOPRAZOLE (PANTOPRAZOLE) (40 MILLIGRAM) (PANTOPRAZOLE) [Concomitant]
  7. DICYCLOMINE (DICYCLOMINE) (10 MILLIGRAM, CAPSULES) (DICYCLOMINE) [Concomitant]
  8. RANITIDINE (RANITIDINE) (RANITIDINE) [Concomitant]

REACTIONS (1)
  - Diarrhoea [None]
